FAERS Safety Report 6145713-9 (Version None)
Quarter: 2009Q2

REPORT INFORMATION
  Report Type: 
  Country: None (occurrence: None)
  Receive Date: 20090406
  Receipt Date: 20090406
  Transmission Date: 20091009
  Serious: No
  Sender: FDA-Public Use
  Company Number: None

PATIENT
  Age: 81 Year
  Sex: Female
  Weight: 64 kg

DRUGS (1)
  1. MORPHINE [Suspect]
     Dosage: X1 IV
     Route: 042
     Dates: start: 20090327

REACTIONS (2)
  - PRURITUS [None]
  - URTICARIA [None]
